FAERS Safety Report 7111009-1 (Version None)
Quarter: 2010Q4

REPORT INFORMATION
  Report Type: 
  Country: None (occurrence: None)
  Receive Date: 20101118
  Receipt Date: 20101110
  Transmission Date: 20110411
  Serious: Yes (Hospitalization)
  Sender: FDA-Public Use
  Company Number: JP-MERCK-1010USA00319

PATIENT
  Age: 80 Year
  Sex: Male
  Weight: 70 kg

DRUGS (9)
  1. JANUVIA [Suspect]
     Indication: DIABETES MELLITUS
     Route: 048
     Dates: start: 20100913, end: 20100927
  2. JANUVIA [Suspect]
     Route: 048
     Dates: start: 20100911, end: 20100912
  3. CRESTOR [Concomitant]
     Indication: DYSLIPIDAEMIA
     Route: 048
  4. WARFARIN [Concomitant]
     Indication: ATRIAL FIBRILLATION
     Route: 048
     Dates: start: 20090701
  5. LASIX [Concomitant]
     Indication: ATRIAL FIBRILLATION
     Route: 048
     Dates: start: 20090701
  6. LASIX [Concomitant]
     Route: 048
     Dates: start: 20090701
  7. ALDACTONE [Concomitant]
     Indication: ATRIAL FIBRILLATION
     Route: 048
     Dates: start: 20090901
  8. TEGRETOL [Concomitant]
     Indication: CONVULSION PROPHYLAXIS
     Dosage: 100 MG*1 ASS AND 150 MG *1 EVENING
     Route: 048
     Dates: start: 20080801
  9. TAKEPRON [Concomitant]
     Indication: REFLUX OESOPHAGITIS
     Route: 048
     Dates: start: 20080801

REACTIONS (1)
  - PNEUMONIA BACTERIAL [None]
